FAERS Safety Report 5730398-3 (Version None)
Quarter: 2008Q2

REPORT INFORMATION
  Report Type: 
  Country: None (occurrence: None)
  Receive Date: 20080505
  Receipt Date: 20080505
  Transmission Date: 20081010
  Serious: Yes (Life-Threatening)
  Sender: FDA-Public Use
  Company Number: None

PATIENT
  Age: 51 Year
  Sex: Male

DRUGS (1)
  1. VISIPAQUE [Suspect]
     Indication: ARTERIOGRAM
     Dosage: 50 ML 1 DOSE INTRA-ARTER
     Route: 013
     Dates: start: 20080114, end: 20080114

REACTIONS (5)
  - DYSPNOEA [None]
  - FLUSHING [None]
  - RESPIRATORY RATE INCREASED [None]
  - TACHYCARDIA [None]
  - THROAT TIGHTNESS [None]
